FAERS Safety Report 4606919-0 (Version None)
Quarter: 2005Q1

REPORT INFORMATION
  Report Type: 
  Country: None (occurrence: None)
  Receive Date: 20050309
  Receipt Date: 20050224
  Transmission Date: 20050727
  Serious: Yes (Death)
  Sender: FDA-Public Use
  Company Number: B0372739A

PATIENT
  Age: 18 Month
  Sex: 0

DRUGS (4)
  1. MYLERAN [Suspect]
     Indication: BONE MARROW TRANSPLANT
     Dosage: 1 MG/KG/SEE DOSAGE TEXT/INTRAVENOUS
     Route: 042
  2. CYCLOPHOSPHAMIDE [Suspect]
     Indication: BONE MARROW TRANSPLANT
     Dosage: 60 MG/KG/DAY/ INTRAVENOUS
     Route: 042
  3. ETOPOSIDE [Suspect]
     Indication: BONE MARROW TRANSPLANT
     Dosage: 1000 MG/M2/ SINGLE DOSE/ INTRAVENOUS
     Route: 042
  4. STEM CELL TRANSPLANT [Concomitant]

REACTIONS (1)
  - MUCOSAL INFLAMMATION [None]
